FAERS Safety Report 17486642 (Version 2)
Quarter: 2020Q1

REPORT INFORMATION
  Report Type: Spontaneous
  Country: GB (occurrence: GB)
  Receive Date: 20200303
  Receipt Date: 20200317
  Transmission Date: 20200409
  Serious: Yes (Other)
  Sender: FDA-Public Use
  Company Number: GB-ROCHE-2561055

PATIENT
  Age: 77 Year
  Sex: Female
  Weight: 84.3 kg

DRUGS (3)
  1. TECENTRIQ [Suspect]
     Active Substance: ATEZOLIZUMAB
     Indication: SMALL CELL LUNG CANCER METASTATIC
     Route: 042
     Dates: start: 20191101, end: 20200221
  2. OMEPRAZOLE. [Concomitant]
     Active Substance: OMEPRAZOLE
     Route: 048
  3. GLUCOSAMINE SULPHATE [Concomitant]
     Active Substance: GLUCOSAMINE
     Route: 048
     Dates: start: 20200220

REACTIONS (2)
  - Acute kidney injury [Unknown]
  - Nephritis [Recovering/Resolving]

NARRATIVE: CASE EVENT DATE: 20200220
